FAERS Safety Report 4872867-4 (Version None)
Quarter: 2006Q1

REPORT INFORMATION
  Report Type: 
  Country: None (occurrence: None)
  Receive Date: 20060105
  Receipt Date: 20030825
  Transmission Date: 20060701
  Serious: No
  Sender: FDA-Public Use
  Company Number: US-BRISTOL-MYERS SQUIBB COMPANY-12364923

PATIENT
  Age: 43 Year
  Sex: Female

DRUGS (2)
  1. SERZONE [Suspect]
  2. FLUOXETINE HCL [Concomitant]

REACTIONS (6)
  - ANXIETY [None]
  - DEPRESSION [None]
  - FATIGUE [None]
  - MUSCLE SPASMS [None]
  - NEPHROLITHIASIS [None]
  - STRESS [None]
